FAERS Safety Report 11112876 (Version 3)
Quarter: 2016Q2

REPORT INFORMATION
  Report Type: Spontaneous
  Country: US (occurrence: US)
  Receive Date: 20150514
  Receipt Date: 20160627
  Transmission Date: 20160815
  Serious: Yes (Hospitalization, Other)
  Sender: FDA-Public Use
  Company Number: US-009507513-1505USA003029

PATIENT
  Sex: Male

DRUGS (4)
  1. FINASTERIDE. [Suspect]
     Active Substance: FINASTERIDE
     Indication: ANDROGENETIC ALOPECIA
     Dosage: 5 MG, QD
     Route: 048
     Dates: start: 20071115
  2. PROSCAR [Suspect]
     Active Substance: FINASTERIDE
     Indication: ANDROGENETIC ALOPECIA
     Dosage: 5 MG, QD
     Route: 048
     Dates: start: 19951031
  3. PROSCAR [Suspect]
     Active Substance: FINASTERIDE
     Dosage: 5 MG TAB; 1/2 TAB DAILY
     Route: 048
     Dates: start: 20000714
  4. PROSCAR [Suspect]
     Active Substance: FINASTERIDE
     Dosage: 1.5 MG, UNK
     Route: 048
     Dates: start: 2000, end: 2009

REACTIONS (8)
  - Erectile dysfunction [Not Recovered/Not Resolved]
  - Respiratory disorder [Unknown]
  - Bowenoid papulosis [Unknown]
  - Chest pain [Unknown]
  - Incorrect dose administered [Unknown]
  - Melanocytic naevus [Unknown]
  - Sexual dysfunction [Not Recovered/Not Resolved]
  - Drug administration error [Unknown]

NARRATIVE: CASE EVENT DATE: 19951031
